FAERS Safety Report 18778383 (Version 1)
Quarter: 2021Q1

REPORT INFORMATION
  Report Type: Report from Study
  Country: US (occurrence: US)
  Receive Date: 20210123
  Receipt Date: 20210123
  Transmission Date: 20210419
  Serious: Yes (Hospitalization)
  Sender: FDA-Public Use
  Company Number: US-TAKEDA-2021TUS004390

PATIENT
  Age: 41 Year
  Sex: Female

DRUGS (4)
  1. TEDUGLUTIDE [Suspect]
     Active Substance: TEDUGLUTIDE
     Indication: MALNUTRITION
     Dosage: 2.5 MILLIGRAM, QD
     Route: 058
     Dates: start: 20200124
  2. TEDUGLUTIDE [Suspect]
     Active Substance: TEDUGLUTIDE
     Indication: MALNUTRITION
     Dosage: 2.5 MILLIGRAM, QD
     Route: 058
     Dates: start: 20200124
  3. TEDUGLUTIDE [Suspect]
     Active Substance: TEDUGLUTIDE
     Indication: MALNUTRITION
     Dosage: 2.5 MILLIGRAM, QD
     Route: 058
     Dates: start: 20200124
  4. TEDUGLUTIDE [Suspect]
     Active Substance: TEDUGLUTIDE
     Indication: MALNUTRITION
     Dosage: 2.5 MILLIGRAM, QD
     Route: 058
     Dates: start: 20200124

REACTIONS (2)
  - Incorrect product administration duration [Unknown]
  - COVID-19 [Unknown]

NARRATIVE: CASE EVENT DATE: 20210111
